FAERS Safety Report 6879478-X (Version None)
Quarter: 2010Q3

REPORT INFORMATION
  Report Type: 
  Country: None (occurrence: None)
  Receive Date: 20100728
  Receipt Date: 20100722
  Transmission Date: 20110219
  Serious: Yes (Death)
  Sender: FDA-Public Use
  Company Number: GXKR2008CO10640

PATIENT
  Age: 71 Year
  Sex: Female

DRUGS (4)
  1. AMLIBON B (NGX) [Suspect]
     Indication: HYPERTENSION
     Dosage: UNK
     Route: 048
     Dates: start: 20061101
  2. LOSARTAN POTASSIUM [Concomitant]
     Indication: HYPERTENSION
  3. ALBUTEROL [Concomitant]
  4. IPRATROPIUM BROMIDE [Concomitant]

REACTIONS (1)
  - RESPIRATORY FAILURE [None]
